FAERS Safety Report 9648861 (Version 2)
Quarter: 2013Q4

REPORT INFORMATION
  Report Type: Spontaneous
  Country: RS (occurrence: RS)
  Receive Date: 20131028
  Receipt Date: 20131028
  Transmission Date: 20140711
  Serious: Yes (Death)
  Sender: FDA-Public Use
  Company Number: PHHY2013RS119217

PATIENT
  Age: 76 Year
  Sex: Male

DRUGS (13)
  1. MEROPENEM [Suspect]
     Indication: CELLULITIS
     Dosage: 1 G, Q8H
     Route: 042
     Dates: start: 20130913, end: 20130924
  2. VANCOMYCIN [Suspect]
     Indication: CELLULITIS
     Dosage: 1 G, Q8H
     Route: 042
     Dates: start: 20130913, end: 20130924
  3. PROBIOTIC//BIFIDOBACTERIUM LACTIS [Concomitant]
     Dosage: 1 DF, QD
  4. EFLORAN [Concomitant]
     Indication: CELLULITIS
     Dosage: 500 MG, Q8H
     Route: 042
     Dates: start: 20130913, end: 20130930
  5. FRAXIPARIN//NADROPARIN CALCIUM [Concomitant]
     Indication: CELLULITIS
     Dosage: 0.3 ML, QD
     Route: 058
     Dates: start: 20130913, end: 20130930
  6. ALBUMIN NOS [Concomitant]
  7. HARTMANN^S SOLUTION [Concomitant]
  8. GLUCOSE [Concomitant]
  9. HALDOL [Concomitant]
     Indication: CELLULITIS
     Dosage: 1 DF, QD
     Route: 030
  10. TAZOCIN [Concomitant]
     Dates: start: 20130924
  11. CLINDAMYCIN [Concomitant]
  12. AMIKACIN [Concomitant]
  13. IMIPENEM [Concomitant]

REACTIONS (2)
  - Stevens-Johnson syndrome [Fatal]
  - Skin reaction [Fatal]
